FAERS Safety Report 21847786 (Version 5)
Quarter: 2023Q1

REPORT INFORMATION
  Report Type: Report from Study
  Country: BY (occurrence: BY)
  Receive Date: 20230111
  Receipt Date: 20230221
  Transmission Date: 20230417
  Serious: Yes (Life-Threatening, Other)
  Sender: FDA-Public Use
  Company Number: BY-MYLANLABS-2023M1001815

PATIENT
  Age: 90 Year
  Sex: Female
  Weight: 43 kg

DRUGS (10)
  1. PRETOMANID [Suspect]
     Active Substance: PRETOMANID
     Indication: Product used for unknown indication
     Dosage: 200 MILLIGRAM, QD
     Route: 048
     Dates: start: 20220907, end: 20230105
  2. BEDAQUILINE [Suspect]
     Active Substance: BEDAQUILINE
     Indication: Product used for unknown indication
     Dosage: 200 MILLIGRAM, 3XW
     Route: 048
     Dates: start: 20220907, end: 20230105
  3. LINEZOLID [Suspect]
     Active Substance: LINEZOLID
     Indication: Product used for unknown indication
     Dosage: 600 MILLIGRAM
     Route: 048
     Dates: start: 20220907, end: 20221125
  4. LINEZOLID [Suspect]
     Active Substance: LINEZOLID
     Dosage: 300 MILLIGRAM, QD
     Route: 048
     Dates: end: 20230105
  5. MOXIFLOXACIN [Suspect]
     Active Substance: MOXIFLOXACIN
     Indication: Product used for unknown indication
     Dosage: 400 MILLIGRAM, QD
     Route: 048
     Dates: start: 20220907, end: 20230105
  6. PYRIDOXINE [Concomitant]
     Active Substance: PYRIDOXINE
     Indication: Prophylaxis
     Dosage: 100 MILLIGRAM, QD
     Route: 048
     Dates: start: 20220906
  7. ETHAMSYLATE [Concomitant]
     Active Substance: ETHAMSYLATE
     Indication: Haemorrhage
     Dosage: 12.5 PERCENT, TID, 12.5% 2.0 INTRANUSCULARLY 3 TIMES A DAY (START DATE: 22-NOV-2022)
     Route: 030
     Dates: end: 20221130
  8. AMINOCAPROIC ACID [Concomitant]
     Active Substance: AMINOCAPROIC ACID
     Indication: Haemorrhage
     Dosage: 0.5 PERCENT, TID, 0.5% 100.0 INTRAVENOUSLY 3 TIMES A DAY (START DATE: 22-NOV-2022)
     Route: 042
     Dates: end: 20221126
  9. METOPROLOL [Concomitant]
     Active Substance: METOPROLOL
     Indication: Sinus tachycardia
     Dosage: UNK, 0.025 PER OS
     Route: 048
     Dates: start: 20230203
  10. ASPIRIN [Concomitant]
     Active Substance: ASPIRIN
     Indication: Myocardial ischaemia
     Dosage: UNK, 0.075 PER OS
     Route: 048
     Dates: start: 20230203

REACTIONS (3)
  - Electrocardiogram QT prolonged [Recovered/Resolved]
  - Femoral neck fracture [Recovered/Resolved]
  - Intestinal haemorrhage [Recovered/Resolved]

NARRATIVE: CASE EVENT DATE: 20221108
